FAERS Safety Report 8126520-4 (Version None)
Quarter: 2012Q1

REPORT INFORMATION
  Report Type: 
  Country: None (occurrence: None)
  Receive Date: 20120210
  Receipt Date: 20120202
  Transmission Date: 20120608
  Serious: Yes (Hospitalization)
  Sender: FDA-Public Use
  Company Number: NL-AMGEN-NLDCT2012000669

PATIENT
  Age: 58 Year
  Sex: Male

DRUGS (9)
  1. ACETAMINOPHEN [Concomitant]
     Dosage: UNK
  2. ASCAL                              /00002702/ [Concomitant]
     Dosage: UNK
  3. SIMVASTATIN [Concomitant]
     Dosage: UNK
  4. OMEPRAZOLE [Concomitant]
     Dosage: UNK
  5. ETANERCEPT [Suspect]
     Indication: PSORIASIS
     Dosage: 50 MG, 2X/WEEK
     Dates: start: 20060629, end: 20120115
  6. METFORMIN HCL [Concomitant]
     Indication: DIABETES MELLITUS
     Dosage: UNK
  7. LISINOPRIL [Concomitant]
     Dosage: 5 MG, UNK
     Route: 048
  8. COLCHICINE [Concomitant]
     Dosage: UNK
  9. TOLBUTAMIDE [Concomitant]
     Indication: DIABETES MELLITUS

REACTIONS (3)
  - PERICARDITIS [None]
  - LUNG CONSOLIDATION [None]
  - PNEUMONIA [None]
